FAERS Safety Report 10040450 (Version 1)
Quarter: 2014Q1

REPORT INFORMATION
  Report Type: Spontaneous
  Country: US (occurrence: US)
  Receive Date: 20140327
  Receipt Date: 20140327
  Transmission Date: 20141002
  Serious: Yes (Other)
  Sender: FDA-Public Use
  Company Number: US-AMGEN-USASP2014020040

PATIENT
  Age: 58 Year
  Sex: Male

DRUGS (1)
  1. XGEVA [Suspect]
     Indication: PROPHYLAXIS
     Dosage: 120 MG, Q4MO
     Route: 065
     Dates: start: 201309

REACTIONS (5)
  - Deafness unilateral [Recovering/Resolving]
  - Hypoaesthesia [Unknown]
  - Pain in jaw [Unknown]
  - Gingival discolouration [Unknown]
  - Gingival swelling [Unknown]
